FAERS Safety Report 4353424-5 (Version None)
Quarter: 2004Q2

REPORT INFORMATION
  Report Type: 
  Country: None (occurrence: None)
  Receive Date: 20040505
  Receipt Date: 20040505
  Transmission Date: 20050107
  Serious: Yes (Other)
  Sender: FDA-Public Use
  Company Number: None

PATIENT

DRUGS (2)
  1. TUBERCULIN PPD [Suspect]
     Indication: TUBERCULIN TEST
     Dosage: 0.1 ML INTRADERMAL
     Route: 023
     Dates: start: 20040413
  2. APLISOL [Suspect]

REACTIONS (2)
  - FALSE POSITIVE TUBERCULOSIS TEST [None]
  - PHARMACEUTICAL PRODUCT COMPLAINT [None]
